FAERS Safety Report 7604094-1 (Version None)
Quarter: 2011Q2

REPORT INFORMATION
  Report Type: 
  Country: None (occurrence: None)
  Receive Date: 20110630
  Receipt Date: 20110616
  Transmission Date: 20111010
  Serious: Yes (Death, Life-Threatening, Hospitalization, Disabling, Other)
  Sender: FDA-Public Use
  Company Number: 2011MA007991

PATIENT
  Age: 67 Year
  Sex: Female

DRUGS (2)
  1. EPIRUBICIN HYDROCHLORIDE [Suspect]
     Indication: BREAST CANCER
  2. CLOZARIL [Suspect]
     Dosage: PO
     Route: 048
     Dates: start: 19960229

REACTIONS (13)
  - BREAST CANCER METASTATIC [None]
  - URINARY RETENTION [None]
  - ONCOLOGIC COMPLICATION [None]
  - FLUID RETENTION [None]
  - PAIN [None]
  - URINARY TRACT OBSTRUCTION [None]
  - METASTASES TO LIVER [None]
  - VOMITING [None]
  - PLEURAL EFFUSION [None]
  - RENAL DISORDER [None]
  - WOUND INFECTION STAPHYLOCOCCAL [None]
  - METASTASES TO BONE MARROW [None]
  - PANCYTOPENIA [None]
